FAERS Safety Report 10511153 (Version 1)
Quarter: 2014Q4

REPORT INFORMATION
  Report Type: Spontaneous
  Country: KR (occurrence: KR)
  Receive Date: 20141010
  Receipt Date: 20141010
  Transmission Date: 20150528
  Serious: Yes (Other)
  Sender: FDA-Public Use
  Company Number: KR-MYLANLABS-2014M1006528

PATIENT

DRUGS (3)
  1. ACAMPROSATE [Suspect]
     Active Substance: ACAMPROSATE
     Dosage: 999 MG/DAY
     Route: 065
  2. LORAZEPAM. [Concomitant]
     Active Substance: LORAZEPAM
     Indication: ALCOHOL DETOXIFICATION
     Dosage: 3 MG/DAY
     Route: 065
  3. THIAMINE [Concomitant]
     Active Substance: THIAMINE
     Dosage: 100 MG/DAY
     Route: 065

REACTIONS (3)
  - Activities of daily living impaired [None]
  - Extrapyramidal disorder [Recovered/Resolved]
  - Parkinsonism [None]
